FAERS Safety Report 12597820 (Version 1)
Quarter: 2016Q3

REPORT INFORMATION
  Report Type: Spontaneous
  Country: US (occurrence: None)
  Receive Date: 20160726
  Receipt Date: 20160726
  Transmission Date: 20161109
  Serious: No
  Sender: FDA-Public Use
  Company Number: None

PATIENT
  Age: 61 Year
  Sex: Female

DRUGS (1)
  1. H.P. ACTHAR [Suspect]
     Active Substance: CORTICOTROPIN
     Indication: SARCOIDOSIS

REACTIONS (5)
  - Hot flush [None]
  - Pain in extremity [None]
  - Hyperhidrosis [None]
  - Diarrhoea [None]
  - Joint swelling [None]

NARRATIVE: CASE EVENT DATE: 20160725
